FAERS Safety Report 8067859-0 (Version None)
Quarter: 2012Q1

REPORT INFORMATION
  Report Type: 
  Country: None (occurrence: None)
  Receive Date: 20120124
  Receipt Date: 20120118
  Transmission Date: 20120608
  Serious: Yes (Hospitalization)
  Sender: FDA-Public Use
  Company Number: US-ABBOTT-08P-163-0432032-00

PATIENT
  Sex: Female
  Weight: 63.56 kg

DRUGS (9)
  1. LIALDA [Concomitant]
     Indication: CROHN'S DISEASE
  2. CARAFATE [Concomitant]
     Indication: CROHN'S DISEASE
  3. XANAX [Concomitant]
     Indication: ANXIETY
  4. LORAZEPAM [Concomitant]
     Indication: INSOMNIA
  5. ATROPINE [Concomitant]
     Indication: DIARRHOEA
  6. CRESTOR [Concomitant]
     Indication: BLOOD CHOLESTEROL INCREASED
  7. ACTIVELLA [Concomitant]
     Indication: HORMONE REPLACEMENT THERAPY
  8. KAPIDEX [Concomitant]
     Indication: GASTROOESOPHAGEAL REFLUX DISEASE
  9. HUMIRA [Suspect]
     Indication: CROHN'S DISEASE
     Route: 058
     Dates: start: 20070701, end: 20071222

REACTIONS (7)
  - PNEUMONIA [None]
  - COUGH [None]
  - RESPIRATORY TRACT CONGESTION [None]
  - INFLUENZA LIKE ILLNESS [None]
  - WHITE BLOOD CELL COUNT INCREASED [None]
  - CHILLS [None]
  - PYREXIA [None]
